FAERS Safety Report 22152667 (Version 1)
Quarter: 2023Q1

REPORT INFORMATION
  Report Type: Spontaneous
  Country: US (occurrence: US)
  Receive Date: 20230329
  Receipt Date: 20230329
  Transmission Date: 20230418
  Serious: No
  Sender: FDA-Public Use
  Company Number: US-002147023-NVSC2023US069750

PATIENT
  Sex: Female

DRUGS (5)
  1. XIIDRA [Suspect]
     Active Substance: LIFITEGRAST
     Indication: Product used for unknown indication
     Dosage: 50 MILLIGRAM PER MILLILITRE, BID (MORNING AND NIGHT)
     Route: 047
     Dates: start: 20210201
  2. XIIDRA [Suspect]
     Active Substance: LIFITEGRAST
     Dosage: 50 MILLIGRAM PER MILLILITRE, BID (MORNING AND NIGHT)
     Route: 047
     Dates: end: 20230311
  3. REFRESH CLASSIC [Concomitant]
     Active Substance: POLYVINYL ALCOHOL\POVIDONE
     Indication: Product used for unknown indication
     Dosage: UNK
     Route: 065
  4. OXYTOCIN [Concomitant]
     Active Substance: OXYTOCIN
     Indication: Product used for unknown indication
     Dosage: UNK
     Route: 065
  5. ERYTHROMYCIN [Concomitant]
     Active Substance: ERYTHROMYCIN
     Indication: Product used for unknown indication
     Dosage: UNK
     Route: 065

REACTIONS (4)
  - Abnormal sensation in eye [Unknown]
  - Photophobia [Unknown]
  - Vision blurred [Unknown]
  - Product dose omission issue [Unknown]
